FAERS Safety Report 7385468-3 (Version None)
Quarter: 2011Q1

REPORT INFORMATION
  Report Type: 
  Country: None (occurrence: None)
  Receive Date: 20110330
  Receipt Date: 20101223
  Transmission Date: 20110831
  Serious: Yes (Other)
  Sender: FDA-Public Use
  Company Number: US-AMGEN-QUU390273

PATIENT
  Sex: Female

DRUGS (4)
  1. NPLATE [Suspect]
     Dates: start: 20090825, end: 20100105
  2. NPLATE [Suspect]
     Indication: THROMBOCYTOPENIA
     Dosage: 2 A?G/KG, UNK
     Dates: start: 20090825, end: 20100105
  3. CORTICOSTEROID NOS [Concomitant]
     Dosage: UNK UNK, UNK
     Dates: start: 20030101
  4. PREDNISONE [Concomitant]

REACTIONS (7)
  - MYALGIA [None]
  - NAUSEA [None]
  - STEROID THERAPY [None]
  - HEADACHE [None]
  - DIZZINESS [None]
  - DRUG INEFFECTIVE [None]
  - ARTHRALGIA [None]
